FAERS Safety Report 10425426 (Version 2)
Quarter: 2014Q4

REPORT INFORMATION
  Report Type: Spontaneous
  Country: US (occurrence: None)
  Receive Date: 20140722
  Receipt Date: 20141020
  Transmission Date: 20150528
  Serious: No
  Sender: FDA-Public Use
  Company Number: AEGR000465

PATIENT
  Age: 51 Year
  Sex: Male
  Weight: 90.2 kg

DRUGS (6)
  1. CRESTOR [Concomitant]
     Active Substance: ROSUVASTATIN CALCIUM
  2. ENALAPRIL [Concomitant]
     Active Substance: ENALAPRIL
  3. JUXTAPID [Suspect]
     Active Substance: LOMITAPIDE MESYLATE
     Indication: TYPE IIA HYPERLIPIDAEMIA
     Route: 048
     Dates: start: 20140424
  4. NICODERM (NICOTINE) [Concomitant]
  5. ZETIA (EZETIMIIBE) [Concomitant]
  6. NITROGLYCERIN (GLYCERYL TRINITRATE) [Concomitant]

REACTIONS (1)
  - Diarrhoea [None]

NARRATIVE: CASE EVENT DATE: 20140425
